FAERS Safety Report 21107165 (Version 1)
Quarter: 2022Q3

REPORT INFORMATION
  Report Type: Spontaneous
  Country: US (occurrence: None)
  Receive Date: 20220720
  Receipt Date: 20220720
  Transmission Date: 20221027
  Serious: Yes (Hospitalization)
  Sender: FDA-Public Use
  Company Number: None

PATIENT

DRUGS (2)
  1. DARZALEX FASPRO [Suspect]
     Active Substance: DARATUMUMAB\HYALURONIDASE-FIHJ
     Route: 058
  2. DARZALEX [Suspect]
     Active Substance: DARATUMUMAB

REACTIONS (4)
  - Product selection error [None]
  - Incorrect route of product administration [None]
  - Incorrect dose administered [None]
  - Product packaging confusion [None]
